FAERS Safety Report 22094249 (Version 1)
Quarter: 2023Q1

REPORT INFORMATION
  Report Type: Spontaneous
  Country: US (occurrence: US)
  Receive Date: 20230314
  Receipt Date: 20230314
  Transmission Date: 20230418
  Serious: Yes (Other)
  Sender: FDA-Public Use
  Company Number: US-BAYER-2023A030450

PATIENT
  Age: 74 Year
  Sex: Male

DRUGS (2)
  1. ASPIRIN [Suspect]
     Active Substance: ASPIRIN
  2. WARFARIN [Concomitant]
     Active Substance: WARFARIN

REACTIONS (2)
  - Gastrointestinal haemorrhage [None]
  - Contraindicated product administered [None]
